FAERS Safety Report 9777695 (Version 1)
Quarter: 2013Q4

REPORT INFORMATION
  Report Type: Spontaneous
  Country: FR (occurrence: FR)
  Receive Date: 20131223
  Receipt Date: 20131223
  Transmission Date: 20140711
  Serious: Yes (Hospitalization, Other)
  Sender: FDA-Public Use
  Company Number: FR-ASTRAZENECA-2013SE92557

PATIENT
  Age: 29805 Day
  Sex: Female

DRUGS (7)
  1. INEXIUM [Suspect]
     Route: 048
     Dates: start: 201309
  2. TRUSOPT [Suspect]
     Route: 047
  3. LAMOTRIGINE [Suspect]
     Route: 048
     Dates: start: 201309
  4. MIANSERINE [Suspect]
     Route: 048
     Dates: start: 201309
  5. TIAPRIDAL [Suspect]
     Route: 048
     Dates: start: 201309
  6. KARDEGIC [Concomitant]
  7. XALATAN [Concomitant]
     Route: 047

REACTIONS (3)
  - Respiratory tract congestion [Recovered/Resolved]
  - PO2 decreased [Recovered/Resolved]
  - Somnolence [Recovered/Resolved]
